FAERS Safety Report 9063851 (Version 1)
Quarter: 2013Q1

REPORT INFORMATION
  Report Type: Report from Study
  Country: US (occurrence: US)
  Receive Date: 20130130
  Receipt Date: 20130130
  Transmission Date: 20140127
  Serious: No
  Sender: FDA-Public Use
  Company Number: US-ABBOTT-12P-163-0936118-00

PATIENT
  Age: 31 Year
  Sex: Female
  Weight: 67.19 kg

DRUGS (2)
  1. HUMIRA 40 MG/0.8 ML PEN [Suspect]
     Indication: PSORIASIS
     Dates: start: 20120215
  2. ORTHO TRI CYCLEN [Concomitant]
     Indication: CONTRACEPTION

REACTIONS (12)
  - Oropharyngeal pain [Not Recovered/Not Resolved]
  - Increased upper airway secretion [Not Recovered/Not Resolved]
  - Productive cough [Not Recovered/Not Resolved]
  - Dysarthria [Unknown]
  - Aphasia [Unknown]
  - Motor dysfunction [Unknown]
  - Unevaluable event [Unknown]
  - Central nervous system lesion [Unknown]
  - Inflammation [Unknown]
  - Demyelination [Unknown]
  - Hypertension [Unknown]
  - Aphonia [Recovering/Resolving]
